FAERS Safety Report 12149520 (Version 1)
Quarter: 2016Q1

REPORT INFORMATION
  Report Type: Spontaneous
  Country: DK (occurrence: DK)
  Receive Date: 20160304
  Receipt Date: 20160304
  Transmission Date: 20160526
  Serious: Yes (Hospitalization, Other)
  Sender: FDA-Public Use
  Company Number: DK-SA-2016SA004931

PATIENT
  Sex: Female

DRUGS (1)
  1. LEMTRADA [Suspect]
     Active Substance: ALEMTUZUMAB
     Dosage: DRUG STARTED WEEK BEFORE CHRISTMAS 2015
     Route: 065
     Dates: start: 201512

REACTIONS (2)
  - Sepsis [Unknown]
  - Listeriosis [Unknown]
